FAERS Safety Report 9773589 (Version 3)
Quarter: 2014Q1

REPORT INFORMATION
  Report Type: Spontaneous
  Country: IT (occurrence: None)
  Receive Date: 20131217
  Receipt Date: 20140109
  Transmission Date: 20141002
  Serious: Yes (Hospitalization, Other)
  Sender: FDA-Public Use
  Company Number: AUR-APL-2013-10501

PATIENT
  Age: 28 Year
  Sex: Female

DRUGS (3)
  1. OLANZAPINE (OLANZAPINE) [Suspect]
     Indication: PRODUCT USED FOR UNKNOWN INDICATION
     Dosage: 2 BOXES OF DRUG
     Route: 048
  2. DEPAKIN CHRONO [Suspect]
     Indication: PRODUCT USED FOR UNKNOWN INDICATION
     Dosage: 4 BOXES OD DRUG
     Route: 048
  3. RIVOTRIL (CLONAZEPAM) [Suspect]
     Indication: PRODUCT USED FOR UNKNOWN INDICATION
     Dosage: ONE BOX OF DRUG
     Route: 048

REACTIONS (2)
  - Coma [None]
  - Drug abuse [None]
